FAERS Safety Report 10362945 (Version 1)
Quarter: 2014Q3

REPORT INFORMATION
  Report Type: Spontaneous
  Country: US (occurrence: None)
  Receive Date: 20140804
  Receipt Date: 20140804
  Transmission Date: 20150326
  Serious: Yes (Hospitalization)
  Sender: FDA-Public Use
  Company Number: None

PATIENT
  Age: 74 Year
  Sex: Male
  Weight: 105 kg

DRUGS (16)
  1. AZITHROMYCIN [Concomitant]
     Active Substance: AZITHROMYCIN ANHYDROUS
  2. COREG [Concomitant]
     Active Substance: CARVEDILOL
  3. FINASTERIDE. [Concomitant]
     Active Substance: FINASTERIDE
  4. RIVAROXABAN [Suspect]
     Active Substance: RIVAROXABAN
     Indication: ATRIAL FIBRILLATION
     Dosage: 1 TABLET
     Route: 048
     Dates: start: 20140227, end: 20140722
  5. ASA [Concomitant]
     Active Substance: ASPIRIN
  6. EPLERENONE. [Concomitant]
     Active Substance: EPLERENONE
  7. SIMVASTATIN. [Concomitant]
     Active Substance: SIMVASTATIN
  8. FISH OIL [Concomitant]
     Active Substance: FISH OIL
  9. SITAGLIPTIN [Concomitant]
     Active Substance: SITAGLIPTIN
  10. ACYCLOVIR. [Concomitant]
     Active Substance: ACYCLOVIR
  11. LASIX [Concomitant]
     Active Substance: FUROSEMIDE
  12. VITAMIN B [Concomitant]
     Active Substance: VITAMIN B
  13. METHOCARBAMOL. [Concomitant]
     Active Substance: METHOCARBAMOL
  14. GLIPIZIDE. [Concomitant]
     Active Substance: GLIPIZIDE
  15. GABAPENTIN. [Concomitant]
     Active Substance: GABAPENTIN
  16. SERTRALINE [Concomitant]
     Active Substance: SERTRALINE HYDROCHLORIDE

REACTIONS (8)
  - Pleuritic pain [None]
  - Asthenia [None]
  - Condition aggravated [None]
  - Fatigue [None]
  - Dyspnoea exertional [None]
  - Occult blood positive [None]
  - Haemoglobin decreased [None]
  - Gastritis erosive [None]

NARRATIVE: CASE EVENT DATE: 20140722
